FAERS Safety Report 8243531-9 (Version None)
Quarter: 2012Q1

REPORT INFORMATION
  Report Type: 
  Country: None (occurrence: None)
  Receive Date: 20120329
  Receipt Date: 20120320
  Transmission Date: 20120608
  Serious: Yes (Hospitalization)
  Sender: FDA-Public Use
  Company Number: PHHY2012DE023406

PATIENT
  Sex: Male
  Weight: 95 kg

DRUGS (15)
  1. ASPIRIN [Concomitant]
     Dosage: 1 DF, QD
     Route: 048
     Dates: start: 20080401
  2. ALLOPURINOL [Concomitant]
     Dosage: 0.5 DF, QD
     Route: 048
     Dates: start: 20080701
  3. ANGIOTENSIN II ANTAGONISTS [Concomitant]
  4. BISOPROLOL FUMARATE [Concomitant]
     Dosage: 0.5 DF, QD
     Route: 048
     Dates: start: 20080401
  5. OTHER ANTIHYPERTENSIVES [Concomitant]
  6. LYRICA [Concomitant]
     Dosage: 2 DF/DAY
     Route: 048
     Dates: start: 20111201
  7. EXFORGE [Suspect]
     Indication: HYPERTENSION
     Dosage: 1 DF, PER DAY
     Route: 048
     Dates: start: 20090319, end: 20111221
  8. PREDNISOLONE [Concomitant]
     Dosage: 1 DF, QD
     Route: 048
     Dates: start: 20090201
  9. TAMSULOSIN HCL [Concomitant]
     Dosage: 1 DF, QD
     Route: 048
     Dates: start: 20100301
  10. RASILEZ [Suspect]
     Indication: HYPERTENSION
     Dosage: 150 MG, PER DAY
     Route: 048
     Dates: start: 20090224, end: 20111221
  11. TORSEMIDE [Concomitant]
     Dosage: 0.5 DF, QD
     Route: 048
     Dates: start: 20080201
  12. ALDACTONE [Concomitant]
     Indication: DIABETES MELLITUS
     Dosage: 1 DF, QD
     Route: 048
     Dates: start: 20100315
  13. SIMVASTATIN [Concomitant]
     Dosage: 1 DF, QD
     Route: 048
     Dates: start: 20080401
  14. ARAVA [Concomitant]
     Dosage: 1 DF, QD
     Route: 048
     Dates: start: 20090201, end: 20111221
  15. CALCIUM CHANNEL BLOCKERS [Concomitant]

REACTIONS (1)
  - HISTIOCYTOSIS [None]
